FAERS Safety Report 12091539 (Version 4)
Quarter: 2016Q1

REPORT INFORMATION
  Report Type: Report from Study
  Country: GB (occurrence: GB)
  Receive Date: 20160218
  Receipt Date: 20160322
  Transmission Date: 20160526
  Serious: Yes (Hospitalization, Other)
  Sender: FDA-Public Use
  Company Number: GB-GILEAD-2016-0197207

PATIENT
  Age: 56 Year
  Sex: Female
  Weight: 78 kg

DRUGS (15)
  1. IDELALISIB [Suspect]
     Active Substance: IDELALISIB
     Dosage: 50 MG, BID
     Route: 048
     Dates: start: 20160301
  2. ACICLOVIR [Concomitant]
     Active Substance: ACYCLOVIR
     Route: 048
     Dates: start: 201306
  3. GS-4059 [Suspect]
     Active Substance: INVESTIGATIONAL PRODUCT
     Indication: B-CELL LYMPHOMA
     Dosage: 20 MG, BID
     Route: 048
     Dates: start: 20151208, end: 20160202
  4. GS-4059 [Suspect]
     Active Substance: INVESTIGATIONAL PRODUCT
     Dosage: 20 MG, BID
     Route: 048
     Dates: start: 20160208
  5. COTRIMOXAZOLE [Concomitant]
     Active Substance: SULFAMETHOXAZOLE\TRIMETHOPRIM
     Route: 048
     Dates: start: 201306
  6. ALLOPURINOL. [Concomitant]
     Active Substance: ALLOPURINOL
     Route: 048
     Dates: start: 20151203
  7. VAGIFEM [Concomitant]
     Active Substance: ESTRADIOL
     Indication: HORMONE REPLACEMENT THERAPY
     Route: 048
     Dates: start: 201405
  8. AZITHROMYCIN ANHYDROUS. [Concomitant]
     Active Substance: AZITHROMYCIN ANHYDROUS
     Route: 048
     Dates: start: 201401
  9. PARACETAMOL [Concomitant]
     Active Substance: ACETAMINOPHEN
     Indication: HEADACHE
     Route: 048
     Dates: start: 20151002
  10. IVIG GAMMAPLEX [Concomitant]
     Route: 042
     Dates: start: 201401
  11. SENNA                              /00571901/ [Concomitant]
     Route: 048
     Dates: start: 20160118
  12. IDELALISIB [Suspect]
     Active Substance: IDELALISIB
     Dosage: 50 MG, ONCE
     Route: 048
     Dates: start: 20160307, end: 20160307
  13. GS-4059 [Suspect]
     Active Substance: INVESTIGATIONAL PRODUCT
     Dosage: 20 MG, ONCE
     Route: 048
     Dates: start: 20160207
  14. IDELALISIB [Suspect]
     Active Substance: IDELALISIB
     Indication: B-CELL LYMPHOMA
     Dosage: 50 MG, BID
     Route: 048
     Dates: start: 20151209, end: 20160202
  15. LACTULOSE. [Concomitant]
     Active Substance: LACTULOSE
     Indication: CONSTIPATION
     Dosage: UNK
     Route: 048
     Dates: start: 20160118, end: 20160122

REACTIONS (1)
  - Cytokine storm [Recovered/Resolved]

NARRATIVE: CASE EVENT DATE: 20160208
